FAERS Safety Report 22300028 (Version 2)
Quarter: 2023Q2

REPORT INFORMATION
  Report Type: Spontaneous
  Country: US (occurrence: US)
  Receive Date: 20230509
  Receipt Date: 20230510
  Transmission Date: 20230722
  Serious: Yes (Hospitalization)
  Sender: FDA-Public Use
  Company Number: US-PFIZER INC-PV202300074887

PATIENT
  Age: 68 Year
  Sex: Female

DRUGS (1)
  1. MEKTOVI [Suspect]
     Active Substance: BINIMETINIB
     Dosage: TAKE 2 TABLETS (30 MG TOTAL) BY MOUTH TWO TIMES A DAY.
     Route: 048

REACTIONS (4)
  - Pneumonia [Unknown]
  - Sepsis [Unknown]
  - Coma [Unknown]
  - Off label use [Unknown]
